FAERS Safety Report 4491053-3 (Version None)
Quarter: 2004Q4

REPORT INFORMATION
  Report Type: 
  Country: None (occurrence: None)
  Receive Date: 20041027
  Receipt Date: 20041011
  Transmission Date: 20050328
  Serious: Yes (Death)
  Sender: FDA-Public Use
  Company Number: L04-SWE-06630-22

PATIENT
  Age: 32 Year
  Sex: Male

DRUGS (6)
  1. CITALOPRAM [Suspect]
  2. ETHYLMORPHINE [Concomitant]
  3. MORPHINE [Concomitant]
  4. CLOZAPINE [Concomitant]
  5. DIAZEPAM [Concomitant]
  6. NORDIAZEPAM [Concomitant]

REACTIONS (1)
  - POISONING [None]
